FAERS Safety Report 8919187 (Version 1)
Quarter: 2012Q4

REPORT INFORMATION
  Report Type: 
  Country: BR (occurrence: BR)
  Receive Date: 20121121
  Receipt Date: 20121121
  Transmission Date: 20130627
  Serious: Yes (Other)
  Sender: FDA-Public Use
  Company Number: BR-JNJFOC-20121108639

PATIENT
  Age: 36 Year
  Sex: Female

DRUGS (1)
  1. XARELTO [Suspect]
     Indication: HYPERCOAGULATION
     Route: 048
     Dates: start: 2012, end: 2012

REACTIONS (2)
  - Thrombosis [Unknown]
  - Drug ineffective [Unknown]
